FAERS Safety Report 8599436-7 (Version None)
Quarter: 2012Q3

REPORT INFORMATION
  Report Type: 
  Country: None (occurrence: None)
  Receive Date: 20120816
  Receipt Date: 20120809
  Transmission Date: 20120928
  Serious: Yes (Hospitalization)
  Sender: FDA-Public Use
  Company Number: JP-JNJFOC-20120209970

PATIENT
  Sex: Female
  Weight: 41 kg

DRUGS (15)
  1. MOTILIUM [Concomitant]
     Route: 048
  2. STELARA [Suspect]
     Indication: PSORIATIC ARTHROPATHY
     Route: 058
     Dates: start: 20110629
  3. STELARA [Suspect]
     Route: 058
     Dates: start: 20111011
  4. INFLIXIMAB [Suspect]
     Indication: PSORIATIC ARTHROPATHY
     Dosage: 10MG/KG PER MONTH
     Dates: end: 20110525
  5. FERROUS CITRATE [Concomitant]
     Route: 048
  6. ROHYPNOL [Concomitant]
     Route: 048
  7. AZEPTIN [Concomitant]
     Indication: PSORIATIC ARTHROPATHY
     Route: 048
  8. UFENAMATE [Concomitant]
     Indication: PSORIATIC ARTHROPATHY
     Route: 061
  9. STELARA [Suspect]
     Route: 058
     Dates: start: 20120110
  10. PREDNISOLONE [Suspect]
     Indication: PSORIATIC ARTHROPATHY
     Route: 048
  11. ATARAX [Concomitant]
     Route: 048
  12. ACETAMINOPHEN [Concomitant]
     Indication: PSORIATIC ARTHROPATHY
     Route: 048
     Dates: end: 20110809
  13. CODEINE PHOSPHATE [Concomitant]
     Indication: PSORIATIC ARTHROPATHY
     Route: 048
  14. STELARA [Suspect]
     Route: 058
     Dates: start: 20110727
  15. METHOTREXATE [Concomitant]
     Indication: PSORIATIC ARTHROPATHY
     Route: 048

REACTIONS (4)
  - C-REACTIVE PROTEIN INCREASED [None]
  - BLOOD ALKALINE PHOSPHATASE INCREASED [None]
  - ERYTHEMA INFECTIOSUM [None]
  - GAMMA-GLUTAMYLTRANSFERASE INCREASED [None]
